FAERS Safety Report 24899965 (Version 1)
Quarter: 2025Q1

REPORT INFORMATION
  Report Type: Spontaneous
  Country: US (occurrence: None)
  Receive Date: 20250129
  Receipt Date: 20250129
  Transmission Date: 20250409
  Serious: Yes (Life-Threatening, Hospitalization)
  Sender: FDA-CTU
  Company Number: None

PATIENT
  Age: 66 Year
  Sex: Female
  Weight: 74.4 kg

DRUGS (11)
  1. CEFTRIAXONE SODIUM [Suspect]
     Active Substance: CEFTRIAXONE SODIUM
     Indication: Urinary tract infection
     Dosage: 1 G GRAM DAILY INTRAVENOUS BOLUS
     Route: 040
     Dates: start: 20250115, end: 20250119
  2. AMLODIPINE [Concomitant]
     Active Substance: AMLODIPINE BESYLATE
     Dates: start: 20250118
  3. ATORVASTATIN [Concomitant]
     Active Substance: ATORVASTATIN
     Dates: start: 20250118
  4. BACLOFEN [Concomitant]
     Active Substance: BACLOFEN
     Dates: start: 20250118
  5. CALCIUM CITRATE\CHOLECALCIFEROL [Concomitant]
     Active Substance: CALCIUM CITRATE\CHOLECALCIFEROL
     Dates: start: 20250118
  6. CARBAMAZEPINE [Concomitant]
     Active Substance: CARBAMAZEPINE
     Dates: start: 20250118
  7. CIPROFLOXACIN [Concomitant]
     Active Substance: CIPROFLOXACIN
     Dates: start: 20250118, end: 20250118
  8. heparin 5000 un sq 8h [Concomitant]
     Dates: start: 20250118
  9. LOSARTAN [Concomitant]
     Active Substance: LOSARTAN
     Dates: start: 20250118
  10. metoprolol succinate 100mg [Concomitant]
     Dates: start: 20250118
  11. ACETAMINOPHEN [Concomitant]
     Active Substance: ACETAMINOPHEN
     Dates: start: 20250118

REACTIONS (9)
  - Sepsis [None]
  - Rash [None]
  - Stevens-Johnson syndrome [None]
  - Oral discomfort [None]
  - Skin burning sensation [None]
  - Pain in extremity [None]
  - Musculoskeletal pain [None]
  - Oropharyngeal pain [None]
  - Pruritus [None]

NARRATIVE: CASE EVENT DATE: 20250118
